FAERS Safety Report 24916824 (Version 2)
Quarter: 2025Q1

REPORT INFORMATION
  Report Type: Spontaneous
  Country: JP (occurrence: JP)
  Receive Date: 20250203
  Receipt Date: 20250307
  Transmission Date: 20250408
  Serious: No
  Sender: UCB
  Company Number: JP-UCBJ-CD202500860UCBPHAPROD

PATIENT
  Age: 92 Year
  Sex: Female

DRUGS (1)
  1. VIMPAT [Suspect]
     Active Substance: LACOSAMIDE
     Indication: Prophylaxis
     Route: 048

REACTIONS (2)
  - Atrioventricular block [Recovered/Resolved]
  - Bradycardia [Recovered/Resolved]
